FAERS Safety Report 5866986-3 (Version None)
Quarter: 2008Q3

REPORT INFORMATION
  Report Type: 
  Country: None (occurrence: None)
  Receive Date: 20080902
  Receipt Date: 20080819
  Transmission Date: 20090109
  Serious: Yes (Other)
  Sender: FDA-Public Use
  Company Number: US-BAYER-200825133GPV

PATIENT

DRUGS (2)
  1. ASPIRIN [Suspect]
     Indication: CEREBROVASCULAR ACCIDENT PROPHYLAXIS
  2. CLOPIDOGREL [Suspect]
     Indication: CEREBROVASCULAR ACCIDENT PROPHYLAXIS

REACTIONS (6)
  - ANGIOPATHY [None]
  - CEREBRAL HAEMORRHAGE [None]
  - HAEMORRHAGE INTRACRANIAL [None]
  - HAEMORRHAGIC STROKE [None]
  - ISCHAEMIC STROKE [None]
  - MYOCARDIAL INFARCTION [None]
